FAERS Safety Report 6819305-X (Version None)
Quarter: 2010Q3

REPORT INFORMATION
  Report Type: 
  Country: None (occurrence: None)
  Receive Date: 20100707
  Receipt Date: 20100630
  Transmission Date: 20110219
  Serious: Yes (Death)
  Sender: FDA-Public Use
  Company Number: JP-BAYER-201012807BYL

PATIENT
  Age: 55 Year
  Sex: Male
  Weight: 57 kg

DRUGS (3)
  1. NEXAVAR [Suspect]
     Indication: RENAL CELL CARCINOMA
     Dosage: TOTAL DAILY DOSE: 800 MG  UNIT DOSE: 200 MG
     Route: 048
     Dates: start: 20090824, end: 20091101
  2. MAGMITT [Concomitant]
     Dosage: TOTAL DAILY DOSE: 990 MG  UNIT DOSE: 330 MG
     Route: 048
  3. PURSENNID [Concomitant]
     Route: 048

REACTIONS (4)
  - ALOPECIA [None]
  - CEREBRAL INFARCTION [None]
  - HEPATIC FUNCTION ABNORMAL [None]
  - RASH [None]
